FAERS Safety Report 7154038-4 (Version None)
Quarter: 2010Q4

REPORT INFORMATION
  Report Type: 
  Country: None (occurrence: None)
  Receive Date: 20101213
  Receipt Date: 20101202
  Transmission Date: 20110411
  Serious: Yes (Hospitalization, Other)
  Sender: FDA-Public Use
  Company Number: FR-ELI_LILLY_AND_COMPANY-FR201004001761

PATIENT
  Age: 78 Year
  Sex: Female

DRUGS (5)
  1. FORTEO [Suspect]
     Indication: OSTEOPOROSIS
     Dosage: 20 UG, DAILY (1/D)
     Route: 058
     Dates: start: 20090206, end: 20100327
  2. TENORMIN [Concomitant]
     Dosage: UNK, UNKNOWN
     Route: 065
  3. KARDEGIC [Concomitant]
     Dosage: UNK, UNKNOWN
     Route: 065
  4. LEVOTHYROXINE SODIUM [Concomitant]
     Dosage: UNK, UNKNOWN
     Route: 065
  5. OROCAL D3 [Concomitant]
     Dosage: UNK, UNKNOWN
     Route: 065

REACTIONS (5)
  - ARRHYTHMIA [None]
  - EXTRASYSTOLES [None]
  - HEART RATE ABNORMAL [None]
  - NAUSEA [None]
  - PALPITATIONS [None]
